FAERS Safety Report 10474356 (Version 1)
Quarter: 2014Q3

REPORT INFORMATION
  Report Type: Spontaneous
  Country: BR (occurrence: BR)
  Receive Date: 20140924
  Receipt Date: 20140924
  Transmission Date: 20150326
  Serious: Yes (Other)
  Sender: FDA-Public Use
  Company Number: BR-PFIZER INC-2014261161

PATIENT
  Age: 51 Year
  Sex: Female
  Weight: 85.4 kg

DRUGS (1)
  1. CELEBRA [Suspect]
     Active Substance: CELECOXIB
     Indication: PAIN IN EXTREMITY
     Dosage: 2 DF, 2X/DAY (EVERY 12 HOURS)
     Dates: start: 201408, end: 2014

REACTIONS (3)
  - Fall [Unknown]
  - Spinal column injury [Unknown]
  - Inflammation [Unknown]

NARRATIVE: CASE EVENT DATE: 2014
